FAERS Safety Report 23053171 (Version 2)
Quarter: 2023Q4

REPORT INFORMATION
  Report Type: Spontaneous
  Country: MX (occurrence: None)
  Receive Date: 20231011
  Receipt Date: 20231013
  Transmission Date: 20240110
  Serious: Yes (Other)
  Sender: FDA-Public Use
  Company Number: MX-ROCHE-3435268

PATIENT
  Sex: Female
  Weight: 72.8 kg

DRUGS (7)
  1. ADO-TRASTUZUMAB EMTANSINE [Suspect]
     Active Substance: ADO-TRASTUZUMAB EMTANSINE
     Indication: Breast cancer
     Dosage: ONE AMPOULE OF 160 AND TWO AMPOULES OF A 100 (TAKES 5 CYCLES)
     Route: 042
     Dates: start: 20230616
  2. ADO-TRASTUZUMAB EMTANSINE [Suspect]
     Active Substance: ADO-TRASTUZUMAB EMTANSINE
     Indication: Endometrial cancer
  3. TRASTUZUMAB [Suspect]
     Active Substance: TRASTUZUMAB
     Indication: Breast cancer
     Dosage: SINGLE APPLICATION DUE TO A SHORTAGE OF TRASTUZUMAB EMTANSINE
     Route: 065
     Dates: start: 20230919, end: 20230919
  4. TRASTUZUMAB [Suspect]
     Active Substance: TRASTUZUMAB
     Indication: Endometrial cancer
  5. INSULIN GLARGINE [Concomitant]
     Active Substance: INSULIN GLARGINE
     Indication: Diabetes mellitus
  6. METFORMIN HYDROCHLORIDE [Concomitant]
     Active Substance: METFORMIN HYDROCHLORIDE
     Indication: Diabetes mellitus
     Route: 048
     Dates: start: 2003, end: 2013
  7. GLYBURIDE [Concomitant]
     Active Substance: GLYBURIDE
     Indication: Diabetes mellitus
     Route: 048
     Dates: start: 2003, end: 2013

REACTIONS (4)
  - Drug ineffective [Unknown]
  - Vomiting [Recovering/Resolving]
  - General physical health deterioration [Unknown]
  - Fatigue [Not Recovered/Not Resolved]
